FAERS Safety Report 8273474-6 (Version None)
Quarter: 2012Q2

REPORT INFORMATION
  Report Type: 
  Country: None (occurrence: None)
  Receive Date: 20120411
  Receipt Date: 20120404
  Transmission Date: 20120825
  Serious: Yes (Death, Other)
  Sender: FDA-Public Use
  Company Number: US-AMGEN-USASP2012021529

PATIENT
  Age: 57 Year
  Sex: Female

DRUGS (1)
  1. ENBREL [Suspect]
     Indication: PSORIASIS
     Dosage: 50 MG, UNK
     Route: 058
     Dates: start: 20070608, end: 20100101

REACTIONS (4)
  - HEPATIC CIRRHOSIS [None]
  - RESPIRATORY ARREST [None]
  - CARDIAC ARREST [None]
  - HEPATITIS C [None]
